FAERS Safety Report 6027782-X (Version None)
Quarter: 2009Q1

REPORT INFORMATION
  Report Type: 
  Country: None (occurrence: None)
  Receive Date: 20090105
  Receipt Date: 20081223
  Transmission Date: 20090719
  Serious: Yes (Death, Hospitalization)
  Sender: FDA-Public Use
  Company Number: JP-ROXANE LABORATORIES, INC.-2008-RO-00463RO

PATIENT
  Age: 80 Year
  Sex: Female
  Weight: 35 kg

DRUGS (11)
  1. METHOTREXATE [Suspect]
     Indication: RHEUMATOID ARTHRITIS
     Dates: start: 20030101
  2. PREDNISOLONE [Suspect]
     Indication: RHEUMATOID ARTHRITIS
     Dosage: 5MG
     Dates: start: 19960101
  3. PREDNISOLONE [Suspect]
     Dosage: 10MG
  4. BUCILLAMINE [Suspect]
     Indication: RHEUMATOID ARTHRITIS
     Dosage: 100MG
     Dates: start: 19960101
  5. LEFLUNOMIDE [Suspect]
     Indication: RHEUMATOID ARTHRITIS
     Dosage: 10MG
     Dates: start: 20030101
  6. ITRACONAZOLE [Suspect]
     Indication: FUNGUS CULTURE POSITIVE
     Dosage: 100MG
  7. ISONIAZID [Concomitant]
     Indication: MYCOBACTERIAL INFECTION
     Dosage: 300MG
  8. RIFAMPICIN [Concomitant]
     Indication: MYCOBACTERIAL INFECTION
     Dosage: 450MG
  9. ETHAMBUTOL [Concomitant]
     Indication: MYCOBACTERIAL INFECTION
     Dosage: 750MG
  10. CLARITHROMYCIN [Concomitant]
     Indication: MYCOBACTERIAL INFECTION
     Dosage: 600MG
  11. STREPTOMYCIN [Concomitant]
     Indication: MYCOBACTERIAL INFECTION

REACTIONS (5)
  - BLOOD PRESSURE DECREASED [None]
  - CONDITION AGGRAVATED [None]
  - JOINT DISLOCATION [None]
  - MYCOBACTERIUM AVIUM COMPLEX INFECTION [None]
  - PNEUMONIA ASPIRATION [None]
